FAERS Safety Report 23761841 (Version 2)
Quarter: 2024Q2

REPORT INFORMATION
  Report Type: Report from Study
  Country: JP (occurrence: JP)
  Receive Date: 20240419
  Receipt Date: 20240426
  Transmission Date: 20240716
  Serious: No
  Sender: FDA-Public Use
  Company Number: JP-ALNYLAM PHARMACEUTICALS, INC.-ALN-2021-001128

PATIENT

DRUGS (41)
  1. ONPATTRO [Suspect]
     Active Substance: PATISIRAN SODIUM
     Indication: Hereditary neuropathic amyloidosis
     Dosage: 19.83 MILLIGRAM
     Route: 041
     Dates: start: 20210409, end: 20210409
  2. ONPATTRO [Suspect]
     Active Substance: PATISIRAN SODIUM
     Dosage: 20.04 MILLIGRAM
     Route: 041
     Dates: start: 20210430, end: 20210430
  3. ONPATTRO [Suspect]
     Active Substance: PATISIRAN SODIUM
     Dosage: 20.2 MILLIGRAM
     Route: 041
     Dates: start: 20210521, end: 20210521
  4. ONPATTRO [Suspect]
     Active Substance: PATISIRAN SODIUM
     Dosage: 20.04 MILLIGRAM
     Route: 041
     Dates: start: 20210611, end: 20210611
  5. ONPATTRO [Suspect]
     Active Substance: PATISIRAN SODIUM
     Dosage: 19.74 MILLIGRAM
     Route: 041
     Dates: start: 20210702, end: 20210702
  6. ONPATTRO [Suspect]
     Active Substance: PATISIRAN SODIUM
     Dosage: 19.32 MILLIGRAM
     Route: 041
     Dates: start: 20210730, end: 20210730
  7. ONPATTRO [Suspect]
     Active Substance: PATISIRAN SODIUM
     Dosage: 19.77 MILLIGRAM
     Route: 041
     Dates: start: 20210820, end: 20210820
  8. ONPATTRO [Suspect]
     Active Substance: PATISIRAN SODIUM
     Dosage: 19.68 MILLIGRAM
     Route: 041
     Dates: start: 20210910, end: 20211001
  9. ONPATTRO [Suspect]
     Active Substance: PATISIRAN SODIUM
     Dosage: 19.38 MILLIGRAM
     Route: 041
     Dates: start: 20211022, end: 20211022
  10. ONPATTRO [Suspect]
     Active Substance: PATISIRAN SODIUM
     Dosage: 19.62 MILLIGRAM
     Route: 041
     Dates: start: 20211112, end: 20211112
  11. ONPATTRO [Suspect]
     Active Substance: PATISIRAN SODIUM
     Dosage: 19.32 MILLIGRAM
     Route: 041
     Dates: start: 20211203, end: 20211203
  12. ONPATTRO [Suspect]
     Active Substance: PATISIRAN SODIUM
     Dosage: 19.56 MILLIGRAM
     Route: 041
     Dates: start: 20211224, end: 20211224
  13. ONPATTRO [Suspect]
     Active Substance: PATISIRAN SODIUM
     Dosage: 19.14 MILLIGRAM
     Route: 041
     Dates: start: 20220114, end: 20220114
  14. ONPATTRO [Suspect]
     Active Substance: PATISIRAN SODIUM
     Dosage: 19.53 MILLIGRAM
     Route: 041
     Dates: start: 20220204, end: 20220204
  15. ONPATTRO [Suspect]
     Active Substance: PATISIRAN SODIUM
     Dosage: 18.93 MILLIGRAM
     Route: 041
     Dates: start: 20220225, end: 20220225
  16. ONPATTRO [Suspect]
     Active Substance: PATISIRAN SODIUM
     Dosage: 19.5 MILLIGRAM
     Route: 041
     Dates: start: 20220318, end: 20220408
  17. ONPATTRO [Suspect]
     Active Substance: PATISIRAN SODIUM
     Dosage: 20.1 MILLIGRAM
     Route: 041
     Dates: start: 20220506, end: 20220506
  18. ONPATTRO [Suspect]
     Active Substance: PATISIRAN SODIUM
     Dosage: 20.0 MILLIGRAM
     Route: 041
     Dates: start: 20220527, end: 20220617
  19. ONPATTRO [Suspect]
     Active Substance: PATISIRAN SODIUM
     Dosage: 20.3 MILLIGRAM
     Route: 041
     Dates: start: 20220708, end: 20220708
  20. ONPATTRO [Suspect]
     Active Substance: PATISIRAN SODIUM
     Dosage: 20.61 MILLIGRAM
     Route: 041
     Dates: start: 20220729, end: 20220729
  21. ONPATTRO [Suspect]
     Active Substance: PATISIRAN SODIUM
     Dosage: 20.52 MILLIGRAM
     Route: 041
     Dates: start: 20220819, end: 20220819
  22. ONPATTRO [Suspect]
     Active Substance: PATISIRAN SODIUM
     Dosage: 20.28 MILLIGRAM
     Route: 041
     Dates: start: 20220916, end: 20220916
  23. ONPATTRO [Suspect]
     Active Substance: PATISIRAN SODIUM
     Dosage: 20.79 MILLIGRAM
     Route: 041
     Dates: start: 20221007, end: 20221007
  24. ONPATTRO [Suspect]
     Active Substance: PATISIRAN SODIUM
     Dosage: 20.55 MILLIGRAM
     Route: 041
     Dates: start: 20221028, end: 20221028
  25. ONPATTRO [Suspect]
     Active Substance: PATISIRAN SODIUM
     Dosage: 20.88 MILLIGRAM
     Route: 041
     Dates: start: 20221118, end: 20221118
  26. ONPATTRO [Suspect]
     Active Substance: PATISIRAN SODIUM
     Dosage: 20.55 MILLIGRAM
     Route: 041
     Dates: start: 20221209, end: 20230217
  27. ONPATTRO [Suspect]
     Active Substance: PATISIRAN SODIUM
     Dosage: 21.42 MILLIGRAM
     Route: 041
     Dates: start: 20230310, end: 20230427
  28. CALONAL [Concomitant]
     Active Substance: ACETAMINOPHEN
     Indication: Prophylaxis
     Dosage: 500 MILLIGRAM, SINGLE
     Route: 065
     Dates: start: 20210409, end: 20230427
  29. DEXAMETHASONE SODIUM PHOSPHATE [Concomitant]
     Active Substance: DEXAMETHASONE PHOSPHATE\DEXAMETHASONE SODIUM PHOSPHATE
     Indication: Prophylaxis
     Dosage: 9.9 MILLIGRAM, SINGLE
     Route: 065
     Dates: start: 20210409, end: 20230427
  30. POLARAMINE [Concomitant]
     Active Substance: DEXCHLORPHENIRAMINE MALEATE
     Indication: Prophylaxis
     Dosage: 5 MILLIGRAM, SINGLE
     Route: 065
     Dates: start: 20210409, end: 20230427
  31. FAMOTIDINE [Concomitant]
     Active Substance: FAMOTIDINE
     Indication: Prophylaxis
     Dosage: 20 MILLIGRAM, SINGLE
     Route: 065
     Dates: start: 20210409, end: 20230427
  32. CARBAMAZEPINE [Concomitant]
     Active Substance: CARBAMAZEPINE
     Indication: Hereditary neuropathic amyloidosis
     Dosage: 200 MILLIGRAM, BID
     Route: 065
     Dates: start: 201606, end: 20210930
  33. CARBAMAZEPINE [Concomitant]
     Active Substance: CARBAMAZEPINE
     Dosage: 150 MILLIGRAM, BID
     Route: 065
     Dates: start: 20211001, end: 20220407
  34. CARBAMAZEPINE [Concomitant]
     Active Substance: CARBAMAZEPINE
     Dosage: 100 MILLIGRAM, BID
     Route: 065
     Dates: start: 20220408, end: 20221007
  35. CARBAMAZEPINE [Concomitant]
     Active Substance: CARBAMAZEPINE
     Dosage: 50 MILLIGRAM, BID
     Route: 065
     Dates: start: 20221008
  36. CARBAMAZEPINE [Concomitant]
     Active Substance: CARBAMAZEPINE
     Dosage: 50 MILLIGRAM, BID
     Route: 065
     Dates: start: 202301
  37. ROSUVASTATIN [Concomitant]
     Active Substance: ROSUVASTATIN
     Indication: Hyperlipidaemia
     Dosage: 5 MILLIGRAM, QD
     Route: 065
  38. Chocola a [Concomitant]
     Indication: Prophylaxis
     Dosage: 0.25 GRAM, TID
     Route: 048
     Dates: start: 20210521, end: 20210819
  39. Chocola a [Concomitant]
     Dosage: 0.4 GRAM, TID
     Route: 048
     Dates: start: 20210820, end: 20211202
  40. Chocola a [Concomitant]
     Dosage: 1.2 GRAM, TID
     Route: 048
     Dates: start: 20211203, end: 20211224
  41. Chocola a [Concomitant]
     Dosage: 2 GRAM, TID
     Route: 048
     Dates: start: 20211225

REACTIONS (1)
  - Epilepsy [Recovered/Resolved]

NARRATIVE: CASE EVENT DATE: 20230101
